FAERS Safety Report 22292017 (Version 2)
Quarter: 2023Q2

REPORT INFORMATION
  Report Type: Report from Study
  Country: US (occurrence: US)
  Receive Date: 20230508
  Receipt Date: 20230627
  Transmission Date: 20230722
  Serious: Yes (Other)
  Sender: FDA-Public Use
  Company Number: US-ABBVIE-4754072

PATIENT
  Age: 73 Year
  Sex: Female

DRUGS (1)
  1. SKYRIZI [Suspect]
     Active Substance: RISANKIZUMAB-RZAA
     Indication: Psoriasis
     Route: 058
     Dates: start: 20221019

REACTIONS (4)
  - Retinal detachment [Recovering/Resolving]
  - Pruritus [Unknown]
  - Head injury [Recovering/Resolving]
  - Retinal tear [Unknown]

NARRATIVE: CASE EVENT DATE: 20230501
